FAERS Safety Report 17125747 (Version 1)
Quarter: 2019Q4

REPORT INFORMATION
  Report Type: Spontaneous
  Country: US (occurrence: US)
  Receive Date: 20191208
  Receipt Date: 20191208
  Transmission Date: 20200122
  Serious: Yes (Hospitalization)
  Sender: FDA-Public Use
  Company Number: NVSC2019US057242

PATIENT
  Age: 2 Day
  Sex: Female

DRUGS (3)
  1. METHIMAZOLE. [Suspect]
     Active Substance: METHIMAZOLE
     Indication: EXPOSURE DURING PREGNANCY
     Dosage: UNK
     Route: 064
  2. METOPROLOL. [Suspect]
     Active Substance: METOPROLOL
     Indication: EXPOSURE DURING PREGNANCY
     Dosage: UNK
     Route: 064
  3. PROPYLTHIOURACIL. [Suspect]
     Active Substance: PROPYLTHIOURACIL
     Indication: EXPOSURE DURING PREGNANCY
     Dosage: UNK
     Route: 064

REACTIONS (4)
  - Foetal exposure during pregnancy [Unknown]
  - Ventricular septal defect [Recovering/Resolving]
  - Cyanosis neonatal [Recovering/Resolving]
  - Pulmonary valve stenosis [Recovering/Resolving]
